FAERS Safety Report 5027986-9 (Version None)
Quarter: 2006Q2

REPORT INFORMATION
  Report Type: 
  Country: None (occurrence: None)
  Receive Date: 20060612
  Receipt Date: 20060531
  Transmission Date: 20061013
  Serious: Yes (Other)
  Sender: FDA-Public Use
  Company Number: HQWYE638701JUN06

PATIENT
  Age: 34 Year
  Sex: Male

DRUGS (4)
  1. EFFEXOR XR [Suspect]
     Dosage: 150 MG
     Route: 048
  2. ZANTAC [Concomitant]
  3. ACETAMINOPHEN [Concomitant]
  4. IBUPROFEN [Concomitant]

REACTIONS (1)
  - DRUG SCREEN POSITIVE [None]
